FAERS Safety Report 8050823-5 (Version None)
Quarter: 2012Q1

REPORT INFORMATION
  Report Type: 
  Country: None (occurrence: None)
  Receive Date: 20120117
  Receipt Date: 20120110
  Transmission Date: 20120608
  Serious: Yes (Other)
  Sender: FDA-Public Use
  Company Number: US-BAYER-2012-003382

PATIENT
  Age: 67 Year
  Sex: Female
  Weight: 49.887 kg

DRUGS (5)
  1. CYMBALTA [Concomitant]
  2. CITRACAL MAXIMUM [Suspect]
     Dosage: 1 DF, UNK, BOTTLE COUNT 180S
     Route: 048
  3. CITRACAL PETITES [Suspect]
     Dosage: 2 DF, UNK, BOTTLE COUNT 200S
     Route: 048
     Dates: start: 20120107
  4. PREMARIN [Concomitant]
  5. CITRACAL MAXIMUM [Suspect]
     Dosage: 1 DF, UNK
     Route: 048
     Dates: start: 20040601

REACTIONS (4)
  - NO ADVERSE EVENT [None]
  - OROPHARYNGEAL PAIN [None]
  - FOREIGN BODY [None]
  - OBSTRUCTIVE AIRWAYS DISORDER [None]
